FAERS Safety Report 6918084-5 (Version None)
Quarter: 2010Q3

REPORT INFORMATION
  Report Type: 
  Country: None (occurrence: None)
  Receive Date: 20100806
  Receipt Date: 20100728
  Transmission Date: 20110219
  Serious: Yes (Other)
  Sender: FDA-Public Use
  Company Number: 2010MA001107

PATIENT
  Age: 11 Year
  Sex: Female

DRUGS (8)
  1. DIAZEPAM [Suspect]
     Indication: EPILEPSY
     Dosage: 5 MG; PRN; RTL
     Route: 054
  2. KEPPRA [Concomitant]
  3. FRISIUM [Concomitant]
  4. VALPROATE SODIUM [Concomitant]
  5. EPISTATUS [Concomitant]
  6. ATARAX [Concomitant]
  7. KALCIPOS-D [Concomitant]
  8. DIAZEPAM [Concomitant]

REACTIONS (1)
  - CYANOSIS [None]
